FAERS Safety Report 16890912 (Version 1)
Quarter: 2019Q4

REPORT INFORMATION
  Report Type: Spontaneous
  Country: US (occurrence: US)
  Receive Date: 20191007
  Receipt Date: 20191007
  Transmission Date: 20200122
  Serious: No
  Sender: FDA-Public Use
  Company Number: US-PFIZER INC-2019429001

PATIENT
  Age: 81 Year
  Sex: Female
  Weight: 46.71 kg

DRUGS (1)
  1. SONATA [Suspect]
     Active Substance: ZALEPLON
     Dosage: 5 MG, 1X/DAY AT BEDTIME/SLEEP

REACTIONS (2)
  - Fall [Unknown]
  - Dizziness [Unknown]
